FAERS Safety Report 10070615 (Version 1)
Quarter: 2014Q2

REPORT INFORMATION
  Report Type: Spontaneous
  Country: SG (occurrence: SG)
  Receive Date: 20140410
  Receipt Date: 20140410
  Transmission Date: 20141212
  Serious: Yes (Other)
  Sender: FDA-Public Use
  Company Number: SG-BAYER-2014-048423

PATIENT
  Age: 40 Year
  Sex: Female

DRUGS (1)
  1. MOXIFLOXACIN ORAL [Suspect]

REACTIONS (6)
  - Rash generalised [Unknown]
  - Joint swelling [Unknown]
  - Swelling face [Unknown]
  - Dyspnoea [Unknown]
  - Rash [Unknown]
  - Face oedema [Unknown]
